FAERS Safety Report 6092960-0 (Version None)
Quarter: 2009Q1

REPORT INFORMATION
  Report Type: 
  Country: None (occurrence: None)
  Receive Date: 20090224
  Receipt Date: 20090209
  Transmission Date: 20090719
  Serious: Yes (Hospitalization)
  Sender: FDA-Public Use
  Company Number: 2009S1000755

PATIENT
  Age: 61 Year
  Sex: Female
  Weight: 68.0396 kg

DRUGS (12)
  1. FENTANYL TRANSDERMAL SYSTEM [Suspect]
     Indication: BACK PAIN
     Dosage: 75 UG; EVERY HOUR; TRANSDERMAL
     Route: 062
  2. ZOLOFT [Concomitant]
  3. LYRICA [Concomitant]
  4. ALLEGRA [Concomitant]
  5. PREMARIN [Concomitant]
  6. GABAPENTIN [Concomitant]
  7. ZANTAC [Concomitant]
  8. PREVACID [Concomitant]
  9. SYNTHROID [Concomitant]
  10. VALIUM [Concomitant]
  11. NORCO [Concomitant]
  12. LEVAQUIN [Concomitant]

REACTIONS (5)
  - HYPOAESTHESIA [None]
  - PRODUCT QUALITY ISSUE [None]
  - TREMOR [None]
  - VOMITING [None]
  - WITHDRAWAL SYNDROME [None]
